FAERS Safety Report 18281434 (Version 1)
Quarter: 2020Q3

REPORT INFORMATION
  Report Type: Report from Study
  Country: US (occurrence: US)
  Receive Date: 20200918
  Receipt Date: 20200918
  Transmission Date: 20201103
  Serious: No
  Sender: FDA-Public Use
  Company Number: NVSC2020US254499

PATIENT
  Age: 69 Year
  Sex: Female

DRUGS (2)
  1. KISQALI FEMARA CO?PACK [Suspect]
     Active Substance: LETROZOLE\RIBOCICLIB
     Dosage: 400 MG CURRENTLY 2 KISQALI TABS DAILY FOR 21 DAYS, FOLLOWED BY 7 DAYS OFF AND ONE FEMARA TABLET DAIL
     Route: 048
  2. KISQALI FEMARA CO?PACK [Suspect]
     Active Substance: LETROZOLE\RIBOCICLIB
     Indication: BREAST CANCER FEMALE
     Dosage: 600 MG CURRENTLY 2 KISQALI TABS DAILY FOR 21 DAYS, FOLLOWED BY 7 DAYS OFF AND ONE FEMARA TABLET DAIL
     Route: 048
     Dates: start: 20200704

REACTIONS (1)
  - Liver function test increased [Recovering/Resolving]

NARRATIVE: CASE EVENT DATE: 20200801
